FAERS Safety Report 8138351-X (Version None)
Quarter: 2012Q1

REPORT INFORMATION
  Report Type: 
  Country: None (occurrence: None)
  Receive Date: 20120215
  Receipt Date: 20120209
  Transmission Date: 20120608
  Serious: Yes (Other)
  Sender: FDA-Public Use
  Company Number: US-JNJFOC-20110304862

PATIENT
  Sex: Male

DRUGS (1)
  1. LEVAQUIN [Suspect]
     Indication: LUNG INFECTION
     Route: 048
     Dates: start: 20030301, end: 20060331

REACTIONS (3)
  - TENDONITIS [None]
  - TENDON RUPTURE [None]
  - SCHIZOPHRENIA, PARANOID TYPE [None]
